FAERS Safety Report 10100010 (Version 2)
Quarter: 2014Q2

REPORT INFORMATION
  Report Type: Spontaneous
  Country: ES (occurrence: ES)
  Receive Date: 20140423
  Receipt Date: 20140515
  Transmission Date: 20141212
  Serious: Yes (Hospitalization)
  Sender: FDA-Public Use
  Company Number: ES-JNJFOC-20140411539

PATIENT
  Age: 80 Year
  Sex: Male

DRUGS (8)
  1. REOPRO [Suspect]
     Indication: CORONARY ANGIOPLASTY
     Route: 042
     Dates: start: 20130703, end: 20130703
  2. HEPARIN [Suspect]
     Indication: PRODUCT USED FOR UNKNOWN INDICATION
     Route: 042
     Dates: start: 20130703, end: 20130703
  3. LYSINE ACETYLSALICYLATE [Concomitant]
     Indication: CORONARY ANGIOPLASTY
     Route: 042
     Dates: start: 20130703, end: 20130703
  4. PRIMPERAN [Concomitant]
     Indication: PRODUCT USED FOR UNKNOWN INDICATION
     Route: 042
     Dates: start: 20130703, end: 20130703
  5. SEGURIL [Concomitant]
     Indication: PRODUCT USED FOR UNKNOWN INDICATION
     Route: 042
     Dates: start: 20130703, end: 20130703
  6. ATROPINE [Concomitant]
     Indication: PRODUCT USED FOR UNKNOWN INDICATION
     Route: 042
     Dates: start: 20130703, end: 20130703
  7. MIDAZOLAM [Concomitant]
     Indication: PRODUCT USED FOR UNKNOWN INDICATION
     Route: 042
     Dates: start: 20130703, end: 20130703
  8. MORPHINE CHLORIDE [Concomitant]
     Indication: PRODUCT USED FOR UNKNOWN INDICATION
     Route: 042
     Dates: start: 20130703, end: 20130703

REACTIONS (2)
  - Thrombocytopenia [Recovered/Resolved]
  - Coronary artery thrombosis [Recovered/Resolved]
